FAERS Safety Report 25242681 (Version 2)
Quarter: 2025Q2

REPORT INFORMATION
  Report Type: Spontaneous
  Country: US (occurrence: US)
  Receive Date: 20250427
  Receipt Date: 20250619
  Transmission Date: 20250717
  Serious: Yes (Other)
  Sender: BRISTOL-MYERS SQUIBB COMPANY
  Company Number: US-BRISTOL-MYERS SQUIBB COMPANY-2025-056662

PATIENT
  Age: 66 Year
  Sex: Female
  Weight: 58.51 kg

DRUGS (3)
  1. ORENCIA [Suspect]
     Active Substance: ABATACEPT
     Indication: Rheumatoid arthritis
     Dosage: TREATMENT START DATE: 9 WEEKS AGO
     Route: 058
     Dates: start: 202502
  2. METHOTREXATE [Concomitant]
     Active Substance: METHOTREXATE
     Indication: Product used for unknown indication
     Dates: start: 202504, end: 20250425
  3. LEUCOVORIN [Concomitant]
     Active Substance: LEUCOVORIN\LEUCOVORIN CALCIUM
     Indication: Product used for unknown indication
     Dates: start: 202504

REACTIONS (3)
  - Device leakage [Unknown]
  - Device safety feature issue [Unknown]
  - Device issue [Unknown]

NARRATIVE: CASE EVENT DATE: 20250412
